FAERS Safety Report 8547240-8 (Version None)
Quarter: 2012Q3

REPORT INFORMATION
  Report Type: 
  Country: None (occurrence: None)
  Receive Date: 20120727
  Receipt Date: 20120229
  Transmission Date: 20120928
  Serious: No
  Sender: FDA-Public Use
  Company Number: US-ASTRAZENECA-2012SE14246

PATIENT
  Age: 51 Year
  Sex: Female
  Weight: 61.2 kg

DRUGS (2)
  1. SEROQUEL XR [Suspect]
     Indication: WEIGHT ABNORMAL
     Route: 048
  2. SEROQUEL XR [Suspect]
     Indication: SLEEP DISORDER
     Route: 048

REACTIONS (3)
  - SINUSITIS [None]
  - OFF LABEL USE [None]
  - NASOPHARYNGITIS [None]
